FAERS Safety Report 20119772 (Version 2)
Quarter: 2021Q4

REPORT INFORMATION
  Report Type: Report from Study
  Country: JP (occurrence: None)
  Receive Date: 20211126
  Receipt Date: 20211201
  Transmission Date: 20220303
  Serious: Yes (Hospitalization)
  Sender: FDA-Public Use
  Company Number: 2021A598549

PATIENT
  Age: 5427 Day
  Sex: Male

DRUGS (4)
  1. SELUMETINIB [Suspect]
     Active Substance: SELUMETINIB
     Indication: Neurofibromatosis
     Route: 048
     Dates: start: 20201119
  2. SELUMETINIB [Suspect]
     Active Substance: SELUMETINIB
     Indication: Neurofibromatosis
     Route: 048
     Dates: start: 20210312
  3. GENTAMICIN SULFATE/BETAMETHASONE BENZOATE [Concomitant]
     Indication: Skin fissures
     Dosage: 1.0 APPLICATION TWICE PER DAY
     Dates: start: 20210312, end: 20210510
  4. SALICYLIC ACID [Concomitant]
     Active Substance: SALICYLIC ACID
     Indication: Skin fissures
     Dosage: 1.0 APPLICATION TWICE PER DAY
     Dates: start: 20210312, end: 20210510

REACTIONS (1)
  - Paronychia [Recovered/Resolved]

NARRATIVE: CASE EVENT DATE: 20210428
